FAERS Safety Report 6699738-5 (Version None)
Quarter: 2010Q2

REPORT INFORMATION
  Report Type: 
  Country: None (occurrence: None)
  Receive Date: 20100427
  Receipt Date: 20100427
  Transmission Date: 20101027
  Serious: Yes (Other)
  Sender: FDA-Public Use
  Company Number: None

PATIENT
  Sex: Female
  Weight: 44.1 kg

DRUGS (1)
  1. NOVOLIN R [Suspect]
     Indication: BLOOD GLUCOSE
     Dosage: 7 UNITS QD OVER 12 HOURS INTRAVENOUS WITH PARENTERAL NUTRITION
     Route: 051
     Dates: start: 20100329, end: 20100401

REACTIONS (3)
  - DRUG DISPENSING ERROR [None]
  - INCORRECT DOSE ADMINISTERED [None]
  - MEDICATION ERROR [None]
